FAERS Safety Report 15225800 (Version 3)
Quarter: 2018Q4

REPORT INFORMATION
  Report Type: Spontaneous
  Country: US (occurrence: US)
  Receive Date: 20180801
  Receipt Date: 20181001
  Transmission Date: 20190204
  Serious: No
  Sender: FDA-Public Use
  Company Number: US-PFIZER INC-2018307515

PATIENT
  Age: 66 Year
  Sex: Female
  Weight: 80.29 kg

DRUGS (1)
  1. PREMARIN [Suspect]
     Active Substance: ESTROGENS, CONJUGATED
     Dosage: 60 MG, WEEKLY (3 TIMES A WEEK/ 20MG ONCE A DAY)

REACTIONS (2)
  - Hypoacusis [Recovered/Resolved]
  - Product use issue [Unknown]
